FAERS Safety Report 5350779-X (Version None)
Quarter: 2007Q2

REPORT INFORMATION
  Report Type: 
  Country: None (occurrence: None)
  Receive Date: 20070608
  Receipt Date: 20070530
  Transmission Date: 20071010
  Serious: Yes (Disabling)
  Sender: FDA-Public Use
  Company Number: ES-ROCHE-500101

PATIENT
  Age: 76 Year
  Sex: Female

DRUGS (5)
  1. BONIVA [Suspect]
     Indication: OSTEOPOROSIS
     Dosage: FORM REPORTED AS COATED TABLET
     Route: 048
     Dates: start: 20070516
  2. PARACETAMOL [Concomitant]
  3. CALCIUM CHLORIDE [Concomitant]
     Indication: OSTEOPOROSIS
  4. DIURETIC [Concomitant]
  5. OMEPRAZOLE [Concomitant]
     Indication: GASTRIC DISORDER

REACTIONS (2)
  - EYE PAIN [None]
  - FACIAL PALSY [None]
